FAERS Safety Report 6638868-0 (Version None)
Quarter: 2010Q1

REPORT INFORMATION
  Report Type: 
  Country: None (occurrence: None)
  Receive Date: 20100317
  Receipt Date: 20100304
  Transmission Date: 20100710
  Serious: No
  Sender: FDA-Public Use
  Company Number: US-B.I. PHARMACEUTICALS,INC./RIDGEFIELD-2010-BP-01829BP

PATIENT
  Sex: Female

DRUGS (3)
  1. ZANTAC 150 [Suspect]
     Indication: GASTROOESOPHAGEAL REFLUX DISEASE
     Dosage: 150 MG
     Route: 048
     Dates: start: 20100128
  2. TIMOPTIC OCUDOSE [Concomitant]
     Indication: GLAUCOMA
  3. ATIVAN [Concomitant]
     Indication: ANXIETY

REACTIONS (2)
  - ABDOMINAL PAIN [None]
  - DIZZINESS [None]
